FAERS Safety Report 10469828 (Version 1)
Quarter: 2014Q3

REPORT INFORMATION
  Report Type: Spontaneous
  Country: US (occurrence: None)
  Receive Date: 20140922
  Receipt Date: 20140922
  Transmission Date: 20150326
  Serious: No
  Sender: FDA-Public Use
  Company Number: None

PATIENT
  Age: 89 Year
  Sex: Male
  Weight: 113.8 kg

DRUGS (2)
  1. TRIAMCINOLONE [Suspect]
     Active Substance: TRIAMCINOLONE
     Indication: SURGERY
     Route: 042
     Dates: start: 20140715, end: 20140715
  2. IODIXANOL [Suspect]
     Active Substance: IODIXANOL
     Indication: SURGERY
     Dates: start: 20140715, end: 20140715

REACTIONS (1)
  - Anaphylactic reaction [None]

NARRATIVE: CASE EVENT DATE: 20140715
